FAERS Safety Report 9408165 (Version 4)
Quarter: 2013Q4

REPORT INFORMATION
  Report Type: Spontaneous
  Country: GB (occurrence: None)
  Receive Date: 20130716
  Receipt Date: 20131105
  Transmission Date: 20140711
  Serious: Yes (Other)
  Sender: FDA-Public Use
  Company Number: JPI-P-033434

PATIENT
  Sex: Female

DRUGS (6)
  1. XYREM (500 MILLIGRAMS/MILLILITERS, SOLUTION) (SODIUM OXYBATE) [Suspect]
     Indication: NARCOLEPSY
     Dosage: (STARTED XYREM IN 2010 OR 2011)
     Route: 048
     Dates: start: 2008
  2. BENDROFLUMETHIAZIDE (BENDROFLUMETHIAZIDE) [Concomitant]
  3. CANDESARTAN CILEXETIL (CANDESARTAN CILEXETIL) [Concomitant]
  4. DEXAMFETAMINE (DEXAMFETAMINE) [Concomitant]
  5. VENLAFAXINE (VENLAFAXINE) [Concomitant]
  6. VELAFAXINE (VELAFAXINE HYDROCHLORIDE) [Concomitant]

REACTIONS (7)
  - Deafness [None]
  - Sleep apnoea syndrome [None]
  - Tinnitus [None]
  - Urethral stenosis [None]
  - Bladder stenosis [None]
  - Arthralgia [None]
  - Injury [None]
